FAERS Safety Report 8990059 (Version 1)
Quarter: 2012Q4

REPORT INFORMATION
  Report Type: Report from Study
  Country: DE (occurrence: DE)
  Receive Date: 20121228
  Receipt Date: 20121228
  Transmission Date: 20130627
  Serious: Yes (Hospitalization)
  Sender: FDA-Public Use
  Company Number: DE-ABBOTT-12P-062-1026385-00

PATIENT
  Age: 51 Year
  Sex: Female
  Weight: 84 kg

DRUGS (5)
  1. HUMIRA [Suspect]
     Indication: RHEUMATOID ARTHRITIS
     Route: 058
     Dates: start: 20021118, end: 20120904
  2. HUMIRA [Suspect]
     Route: 058
     Dates: start: 2012, end: 20121117
  3. IBUPROFEN [Concomitant]
     Indication: PRODUCT USED FOR UNKNOWN INDICATION
     Dates: start: 201209, end: 201211
  4. RAMIPRIL [Concomitant]
     Indication: HYPERTENSION
     Dosage: 5 mg
  5. ASS [Concomitant]
     Indication: TRANSIENT ISCHAEMIC ATTACK
     Dosage: 100 mg
     Route: 048

REACTIONS (2)
  - Transient ischaemic attack [Recovered/Resolved]
  - Joint arthroplasty [Recovered/Resolved]
